FAERS Safety Report 11795201 (Version 1)
Quarter: 2015Q4

REPORT INFORMATION
  Report Type: Other
  Country: US (occurrence: US)
  Receive Date: 20151202
  Receipt Date: 20151202
  Transmission Date: 20160305
  Serious: Yes (Other)
  Sender: FDA-Public Use
  Company Number: US-DEP_13142_2015

PATIENT
  Age: 75 Year
  Sex: Female
  Weight: 50 kg

DRUGS (8)
  1. GRALISE [Suspect]
     Active Substance: GABAPENTIN
     Dosage: TITRATED UP TO 600MG ONCE DAILY
     Route: 048
     Dates: start: 20151118, end: 20151119
  2. VALSARTAN. [Concomitant]
     Active Substance: VALSARTAN
     Indication: BLOOD PRESSURE ABNORMAL
     Route: 048
     Dates: start: 2012
  3. XANAX [Concomitant]
     Active Substance: ALPRAZOLAM
     Indication: SLEEP DISORDER
     Dosage: AT BEDTIME
     Route: 048
     Dates: start: 201402
  4. ANTI-ESTROGEN PILL [Concomitant]
     Indication: BREAST CANCER
     Dosage: AT BEDTIME
     Route: 048
  5. NAPROXEN. [Concomitant]
     Active Substance: NAPROXEN
     Indication: PAIN
     Dosage: PRN
     Route: 048
     Dates: start: 2012
  6. CLONIDINE. [Concomitant]
     Active Substance: CLONIDINE
     Indication: BLOOD PRESSURE ABNORMAL
     Route: 048
     Dates: start: 201510
  7. GRALISE [Suspect]
     Active Substance: GABAPENTIN
     Indication: SCIATICA
     Route: 048
     Dates: start: 20151120
  8. HYDROCODONE [Concomitant]
     Active Substance: HYDROCODONE
     Indication: PAIN
     Dosage: 10/325MG TABLET, 4 TIMES PER DAY PRN
     Route: 048
     Dates: start: 201211

REACTIONS (4)
  - Activities of daily living impaired [Recovered/Resolved]
  - Steroid therapy [Recovered/Resolved]
  - Off label use [Not Recovered/Not Resolved]
  - Mobility decreased [Recovered/Resolved]

NARRATIVE: CASE EVENT DATE: 20151118
